FAERS Safety Report 18512664 (Version 1)
Quarter: 2020Q4

REPORT INFORMATION
  Report Type: Spontaneous
  Country: US (occurrence: US)
  Receive Date: 20201117
  Receipt Date: 20201117
  Transmission Date: 20210114
  Serious: Yes (Other)
  Sender: FDA-Public Use
  Company Number: US-BAYER-2020-246520

PATIENT
  Age: 17 Year
  Sex: Male

DRUGS (2)
  1. SORAFENIB (RAF KINASE INHIBITOR) [Suspect]
     Active Substance: SORAFENIB
     Indication: DESMOID TUMOUR
  2. NIROGACESTAT [Concomitant]
     Active Substance: NIROGACESTAT
     Dosage: 150 MG, BID

REACTIONS (8)
  - Abdominal pain [None]
  - Product administered to patient of inappropriate age [None]
  - Fatigue [None]
  - Product use in unapproved indication [None]
  - Acne [None]
  - Off label use [None]
  - Hypertension [None]
  - Desmoid tumour [None]
